FAERS Safety Report 18605395 (Version 2)
Quarter: 2020Q4

REPORT INFORMATION
  Report Type: Spontaneous
  Country: US (occurrence: US)
  Receive Date: 20201211
  Receipt Date: 20201214
  Transmission Date: 20210114
  Serious: Yes (Hospitalization, Other)
  Sender: FDA-Public Use
  Company Number: US-PFIZER INC-2020484113

PATIENT
  Age: 66 Year
  Sex: Female
  Weight: 106.59 kg

DRUGS (2)
  1. CEFALEXIN [Suspect]
     Active Substance: CEPHALEXIN
     Indication: LOCALISED INFECTION
     Dosage: 500 MG, 4X/DAY
     Route: 048
  2. CLINDAMYCIN HCL [Suspect]
     Active Substance: CLINDAMYCIN HYDROCHLORIDE
     Indication: LOCALISED INFECTION
     Dosage: 300 MG, 4X/DAY (TWO 150 MG CAP FOUR TIMES PER DAY FOR 10 DAYS)
     Route: 048

REACTIONS (6)
  - Spleen contusion [Unknown]
  - Amnesia [Unknown]
  - Visual impairment [Unknown]
  - Anaphylactic shock [Not Recovered/Not Resolved]
  - Seizure [Unknown]
  - Dermatitis allergic [Unknown]
